FAERS Safety Report 5780219-8 (Version None)
Quarter: 2008Q2

REPORT INFORMATION
  Report Type: 
  Country: None (occurrence: None)
  Receive Date: 20080620
  Receipt Date: 20080609
  Transmission Date: 20081010
  Serious: Yes (Other)
  Sender: FDA-Public Use
  Company Number: BR-ROCHE-569990

PATIENT
  Sex: Male
  Weight: 70 kg

DRUGS (3)
  1. CLONAZEPAM [Suspect]
     Indication: CONVULSION PROPHYLAXIS
     Dosage: (SOMETIMES 1.5 MG, SOMETIMES MORE THAN 1.5 MG)
     Route: 048
     Dates: start: 19890101
  2. 1 CONCOMITANT DRUG [Concomitant]
     Indication: DEPRESSION
     Dosage: MANIPULATED DRUG WITH MAPROTILINE 25 MG, SULPIRIDE 25MG, UNSPECIFIED DRUG 25MG AND CLOBAZAM 10MG.
  3. GARDENAL [Concomitant]

REACTIONS (4)
  - HYPERVENTILATION [None]
  - ILL-DEFINED DISORDER [None]
  - JOINT RANGE OF MOTION DECREASED [None]
  - MEDICATION ERROR [None]
